FAERS Safety Report 7977874-0 (Version None)
Quarter: 2011Q4

REPORT INFORMATION
  Report Type: 
  Country: None (occurrence: None)
  Receive Date: 20111214
  Receipt Date: 20111202
  Transmission Date: 20120403
  Serious: No
  Sender: FDA-Public Use
  Company Number: US-AMGEN-USASP2011061064

PATIENT
  Age: 51 Year
  Sex: Female
  Weight: 99.773 kg

DRUGS (4)
  1. ENBREL [Suspect]
     Indication: ANKYLOSING SPONDYLITIS
     Dosage: 50 MG, QWK
     Route: 058
     Dates: start: 20111114
  2. CYMBALTA [Concomitant]
     Indication: PAIN
     Dosage: 40 MG, UNK
     Dates: start: 20110808
  3. FLEXERIL [Concomitant]
     Indication: SLEEP DISORDER
     Dosage: 10 MG, HS
     Route: 048
     Dates: start: 20110404
  4. TOLECTIN [Concomitant]
     Indication: PAIN
     Dosage: 600 MG, TID
     Dates: start: 20110808

REACTIONS (1)
  - INJECTION SITE PAIN [None]
